FAERS Safety Report 9011776 (Version 1)
Quarter: 2012Q4

REPORT INFORMATION
  Report Type: Spontaneous
  Country: US (occurrence: None)
  Receive Date: 20121228
  Receipt Date: 20121228
  Transmission Date: 20130627
  Serious: Yes (Hospitalization)
  Sender: FDA-Public Use
  Company Number: FK201204168

PATIENT
  Age: 68 Year
  Sex: Female
  Weight: 73 kg

DRUGS (22)
  1. CARBOPLATIN (CARBOPLATIN) [Suspect]
     Indication: OVARIAN CANCER
     Dates: start: 20100902, end: 20101104
  2. PACLITAXEL (PACLITAXEL) [Suspect]
     Indication: OVARIAN CANCER
     Dates: start: 20100902, end: 20101104
  3. MORAB-003 [Suspect]
     Indication: OVARIAN CANCER
     Route: 042
     Dates: start: 20100902, end: 20101028
  4. CENTRUM SILVER TABLET (CENTRUM SILVER (01292501) [Concomitant]
  5. ACETAMINOPHEN (PARACETAMOL) [Concomitant]
  6. VITAMIN B COMPLEX WITH C TABLET (BEMINAL WITH C) [Concomitant]
  7. MAGNESIUM OXIDE (MAGNESIUM OXIDE) [Concomitant]
  8. CHANTIX (VARENICLINE) [Concomitant]
  9. PERIDEX (DEXAMETHASONE) [Concomitant]
  10. BENADRYL (DIPHENHYDRAMINE HYDROCHLORIDE) [Concomitant]
  11. FLUCONAZOLE (FLUCONAZOLE) [Concomitant]
  12. MORPHINE SULFATE (MORPHINE SULFATE) [Concomitant]
  13. LORAZEPAM (LORAZEPAM) [Concomitant]
  14. COMPAZINE (PROCHLORPERAZINE EDISYLATE) [Concomitant]
  15. ONDANSETRON (ONDANSETRON) [Concomitant]
  16. ACICLOVIR (ACICLOVIR) [Concomitant]
  17. EFFEXOR (VENLAFAXINE) [Concomitant]
  18. NEURONTIN (GABAPENTIN) [Concomitant]
  19. PRILOSEC (OMEPRAZOLE) [Concomitant]
  20. PIROXICAM (PIROXICAM) [Concomitant]
  21. LIPITOR (ATORVASTATIN CALCIUM) [Concomitant]
  22. PROPRANOLOL (PROPRANOLOL) [Concomitant]

REACTIONS (3)
  - Diarrhoea [None]
  - Abdominal pain [None]
  - Atrial fibrillation [None]
